FAERS Safety Report 10638967 (Version 1)
Quarter: 2014Q4

REPORT INFORMATION
  Report Type: Spontaneous
  Country: US (occurrence: US)
  Receive Date: 20141208
  Receipt Date: 20141208
  Transmission Date: 20150529
  Serious: Yes (Hospitalization, Other)
  Sender: FDA-Public Use
  Company Number: US-GLAXOSMITHKLINE-US2014GSK032712

PATIENT
  Sex: Female

DRUGS (1)
  1. FLOVENT [Suspect]
     Active Substance: FLUTICASONE PROPIONATE
     Indication: EMPHYSEMA
     Dosage: 1 PUFF(S), BID
     Route: 055

REACTIONS (3)
  - Rehabilitation therapy [Unknown]
  - Fall [Recovered/Resolved]
  - Hip fracture [Recovering/Resolving]

NARRATIVE: CASE EVENT DATE: 2014
